FAERS Safety Report 24171102 (Version 2)
Quarter: 2024Q3

REPORT INFORMATION
  Report Type: Spontaneous
  Country: US (occurrence: US)
  Receive Date: 20240805
  Receipt Date: 20240919
  Transmission Date: 20241016
  Serious: No
  Sender: LUPIN
  Company Number: US-LUPIN PHARMACEUTICALS INC.-2024-06727

PATIENT

DRUGS (1)
  1. BUPROPION HYDROCHLORIDE [Suspect]
     Active Substance: BUPROPION HYDROCHLORIDE
     Indication: Product used for unknown indication
     Dosage: UNK
     Route: 065

REACTIONS (7)
  - Anxiety [Unknown]
  - Condition aggravated [Unknown]
  - Depressed mood [Unknown]
  - Headache [Unknown]
  - Feeling of despair [Unknown]
  - Asthenia [Unknown]
  - Drug ineffective [Unknown]
